FAERS Safety Report 24646244 (Version 1)
Quarter: 2024Q4

REPORT INFORMATION
  Report Type: Spontaneous
  Country: CN (occurrence: CN)
  Receive Date: 20241121
  Receipt Date: 20241121
  Transmission Date: 20250115
  Serious: Yes (Hospitalization)
  Sender: SINOTHERAPEUTICS INC.
  Company Number: CN-SNT-000411

PATIENT
  Age: 37 Year
  Sex: Female

DRUGS (1)
  1. POSACONAZOLE [Suspect]
     Active Substance: POSACONAZOLE
     Indication: Product used for unknown indication
     Route: 065

REACTIONS (2)
  - Condition aggravated [Recovering/Resolving]
  - Stenosis [Recovering/Resolving]
